FAERS Safety Report 16663718 (Version 3)
Quarter: 2019Q3

REPORT INFORMATION
  Report Type: Spontaneous
  Country: GB (occurrence: GB)
  Receive Date: 20190802
  Receipt Date: 20190812
  Transmission Date: 20191004
  Serious: Yes (Other)
  Sender: FDA-Public Use
  Company Number: GB-MYLANLABS-2019M1072139

PATIENT
  Sex: Male

DRUGS (5)
  1. ATORVASTATIN [Suspect]
     Active Substance: ATORVASTATIN
     Indication: HYPERTENSION
     Dosage: UNK
  2. APIXABAN [Suspect]
     Active Substance: APIXABAN
     Indication: CARDIAC AMYLOIDOSIS
     Dosage: UNK
  3. APIXABAN [Suspect]
     Active Substance: APIXABAN
     Indication: CEREBROVASCULAR ACCIDENT PROPHYLAXIS
     Dosage: 5 MG, BID (10 MG,QD)
     Route: 048
  4. APIXABAN [Suspect]
     Active Substance: APIXABAN
     Indication: ATRIAL FIBRILLATION
  5. ATORVASTATIN [Suspect]
     Active Substance: ATORVASTATIN
     Indication: CARDIAC AMYLOIDOSIS
     Dosage: 10 MILLIGRAM, QD
     Route: 048

REACTIONS (11)
  - Cardiac amyloidosis [Unknown]
  - Dizziness [Unknown]
  - Oedema [Unknown]
  - Arrhythmia [Unknown]
  - Atrial fibrillation [Unknown]
  - Circulatory collapse [Unknown]
  - Drug ineffective for unapproved indication [Unknown]
  - Syncope [Unknown]
  - Sleep disorder [Unknown]
  - Dyspnoea [Unknown]
  - Fatigue [Unknown]
